FAERS Safety Report 17259998 (Version 2)
Quarter: 2020Q2

REPORT INFORMATION
  Report Type: Spontaneous
  Country: FR (occurrence: FR)
  Receive Date: 20200111
  Receipt Date: 20200527
  Transmission Date: 20200713
  Serious: Yes (Other)
  Sender: FDA-Public Use
  Company Number: FR-TEVA-2020-FR-1166054

PATIENT
  Age: 76 Year
  Sex: Female
  Weight: 60 kg

DRUGS (7)
  1. ZOLPIDEM [Concomitant]
     Active Substance: ZOLPIDEM TARTRATE
     Route: 048
  2. SOLUPRED 20 MG, COMPRIME ORODISPERSIBLE [Concomitant]
     Active Substance: PREDNISOLONE SODIUM METAZOATE
     Indication: PREMEDICATION
     Dosage: 150 MG
     Route: 048
     Dates: start: 20191126, end: 20191127
  3. CIMETIDINE [Suspect]
     Active Substance: CIMETIDINE
     Indication: PREMEDICATION
     Dosage: 200 MG PER TOTAL
     Route: 048
     Dates: start: 20191127, end: 20191127
  4. ZOPHREN 8 MG, COMPRIME PELLICULE [Concomitant]
     Active Substance: ONDANSETRON HYDROCHLORIDE
     Indication: PREMEDICATION
     Dosage: 1 DOSAGE FORMS
     Route: 048
     Dates: start: 20191127, end: 20191127
  5. PACLITAXEL. [Suspect]
     Active Substance: PACLITAXEL
     Indication: OVARIAN CANCER
     Dosage: 5.1 MG
     Route: 041
     Dates: start: 20191127, end: 20191127
  6. SOLU-MEDROL [Concomitant]
     Active Substance: METHYLPREDNISOLONE SODIUM SUCCINATE
     Indication: PREMEDICATION
     Dosage: 1 DOSAGE FORMS PER TOTAL
     Route: 042
     Dates: start: 20191127, end: 20191127
  7. POLARAMINE [Concomitant]
     Active Substance: DEXCHLORPHENIRAMINE MALEATE
     Indication: PREMEDICATION
     Dosage: 1 DOSAGE FORMS
     Route: 042
     Dates: start: 20191127, end: 20191127

REACTIONS (2)
  - Infusion related reaction [Recovered/Resolved]
  - Gastrointestinal pain [Recovered/Resolved]

NARRATIVE: CASE EVENT DATE: 20191127
